FAERS Safety Report 8626988 (Version 3)
Quarter: 2013Q1

REPORT INFORMATION
  Report Type: Report from Study
  Country: CA (occurrence: CA)
  Receive Date: 20120620
  Receipt Date: 20130116
  Transmission Date: 20140127
  Serious: Yes (Other)
  Sender: FDA-Public Use
  Company Number: CA-ROCHE-1078857

PATIENT
  Age: 68 Year
  Sex: Male
  Weight: 68 kg

DRUGS (9)
  1. RITUXIMAB [Suspect]
     Indication: RHEUMATOID ARTHRITIS
     Route: 042
     Dates: start: 20120117
  2. ACETAMINOPHEN [Concomitant]
     Indication: PREMEDICATION
     Route: 048
     Dates: start: 20120117
  3. ACETAMINOPHEN [Concomitant]
     Route: 048
     Dates: start: 20120725
  4. PREDNISONE [Concomitant]
  5. METHOTREXATE [Concomitant]
  6. DILANTIN [Concomitant]
  7. MICARDIS [Concomitant]
  8. DIPHENHYDRAMINE HCL [Concomitant]
     Indication: PREMEDICATION
     Route: 048
     Dates: start: 20120117
  9. METHYLPREDNISOLONE [Concomitant]
     Indication: PREMEDICATION
     Route: 042
     Dates: start: 20120117

REACTIONS (2)
  - Emphysema [Not Recovered/Not Resolved]
  - Nasopharyngitis [Recovering/Resolving]
